FAERS Safety Report 18886727 (Version 15)
Quarter: 2021Q2

REPORT INFORMATION
  Report Type: Report from Study
  Country: US (occurrence: US)
  Receive Date: 20210212
  Receipt Date: 20210525
  Transmission Date: 20210717
  Serious: Yes (Hospitalization)
  Sender: FDA-Public Use
  Company Number: US-EISAI MEDICAL RESEARCH-EC-2021-087877

PATIENT
  Age: 74 Year
  Sex: Male
  Weight: 85.1 kg

DRUGS (21)
  1. LENVATINIB [Suspect]
     Active Substance: LENVATINIB
     Indication: SQUAMOUS CELL CARCINOMA OF HEAD AND NECK
     Route: 048
     Dates: start: 20201006, end: 20210125
  2. PRINIVIL [Concomitant]
     Active Substance: LISINOPRIL
     Dates: start: 198501
  3. PEMBROLIZUMAB. [Suspect]
     Active Substance: PEMBROLIZUMAB
     Route: 041
     Dates: start: 20210210
  4. CYANOCOBALAMIN. [Concomitant]
     Active Substance: CYANOCOBALAMIN
     Dates: start: 201801
  5. AUGMENTIN [Concomitant]
     Active Substance: AMOXICILLIN\CLAVULANATE POTASSIUM
     Dates: start: 20210125, end: 20210204
  6. PEMBROLIZUMAB. [Suspect]
     Active Substance: PEMBROLIZUMAB
     Indication: SQUAMOUS CELL CARCINOMA OF HEAD AND NECK
     Route: 041
     Dates: start: 20201006, end: 20201230
  7. VALTREX [Concomitant]
     Active Substance: VALACYCLOVIR HYDROCHLORIDE
     Dates: start: 201501
  8. VITAMINS (UNSPECIFIED) [Concomitant]
     Active Substance: VITAMINS
     Dates: start: 201801
  9. SYNTHROID [Concomitant]
     Active Substance: LEVOTHYROXINE SODIUM
     Dates: start: 20201125, end: 20210131
  10. MAGNESIUM SULFATE. [Concomitant]
     Active Substance: MAGNESIUM SULFATE
     Route: 041
     Dates: start: 20210120, end: 20210122
  11. MAGNESIUM OXIDE. [Concomitant]
     Active Substance: MAGNESIUM OXIDE
     Dates: start: 202101
  12. NORVASC [Concomitant]
     Active Substance: AMLODIPINE BESYLATE
     Dates: start: 198501
  13. ZYLOPRIM [Concomitant]
     Active Substance: ALLOPURINOL
     Dates: start: 199001
  14. COLECALCIFEROL [Concomitant]
     Active Substance: CHOLECALCIFEROL
     Dates: start: 201801
  15. PEMBROLIZUMAB. [Suspect]
     Active Substance: PEMBROLIZUMAB
     Route: 041
     Dates: start: 20210120, end: 20210120
  16. TYLENOL [Concomitant]
     Active Substance: ACETAMINOPHEN
     Dates: start: 201801
  17. ACETYLSALICYLIC ACID [Concomitant]
     Active Substance: ASPIRIN
     Dates: start: 201901
  18. TRIAMCINOLONE [Concomitant]
     Active Substance: TRIAMCINOLONE
     Dates: start: 20210120
  19. COLCHICINE. [Concomitant]
     Active Substance: COLCHICINE
     Dates: start: 199001
  20. PRILOSEC [Concomitant]
     Active Substance: OMEPRAZOLE MAGNESIUM
     Dates: start: 20180402
  21. EMLA [Concomitant]
     Active Substance: LIDOCAINE\PRILOCAINE
     Dates: start: 202009

REACTIONS (2)
  - Perineal abscess [Recovered/Resolved]
  - Perirectal abscess [Recovered/Resolved]

NARRATIVE: CASE EVENT DATE: 20210126
